FAERS Safety Report 8446907-X (Version None)
Quarter: 2012Q2

REPORT INFORMATION
  Report Type: 
  Country: None (occurrence: None)
  Receive Date: 20120612
  Receipt Date: 20120612
  Transmission Date: 20120825
  Serious: No
  Sender: FDA-Public Use
  Company Number: None

PATIENT
  Age: 30 Year
  Sex: Female
  Weight: 74.8435 kg

DRUGS (1)
  1. PARAGUARD IUD PARAGUARD [Suspect]

REACTIONS (9)
  - LOSS OF LIBIDO [None]
  - DEVICE DISLOCATION [None]
  - HAIR COLOUR CHANGES [None]
  - PANIC ATTACK [None]
  - ALOPECIA [None]
  - POISONING [None]
  - DEPRESSION [None]
  - FEELING ABNORMAL [None]
  - INDIFFERENCE [None]
